FAERS Safety Report 20419006 (Version 3)
Quarter: 2024Q3

REPORT INFORMATION
  Report Type: Spontaneous
  Country: PT (occurrence: PT)
  Receive Date: 20220203
  Receipt Date: 20240917
  Transmission Date: 20241016
  Serious: Yes (Other)
  Sender: CELLTRION
  Company Number: PT-CELLTRION INC.-2021PT017635

PATIENT

DRUGS (13)
  1. RITUXIMAB [Suspect]
     Active Substance: RITUXIMAB
     Indication: Relapsing-remitting multiple sclerosis
     Dosage: UNK, (ADDITIONAL INFORMATION ON DRUG (CODED): OFF LABEL USE)
     Route: 065
  2. PHENYTOIN [Suspect]
     Active Substance: PHENYTOIN
     Indication: Multiple sclerosis
     Dosage: UNK, (ADDITIONAL INFORMATION ON DRUG (CODED): OFF LABEL USE)
     Route: 065
  3. CYCLOPHOSPHAMIDE [Suspect]
     Active Substance: CYCLOPHOSPHAMIDE
     Indication: Multiple sclerosis
     Dosage: UNK
     Route: 065
  4. DALFAMPRIDINE [Suspect]
     Active Substance: DALFAMPRIDINE
     Indication: Multiple sclerosis
     Dosage: UNK (ADDITIONAL INFORMATION ON DRUG (CODED): OFF LABEL USE)
     Route: 065
  5. AMANTADINE [Suspect]
     Active Substance: AMANTADINE
     Indication: Multiple sclerosis
     Dosage: UNK
     Route: 065
  6. NATALIZUMAB [Suspect]
     Active Substance: NATALIZUMAB
     Indication: Multiple sclerosis
     Dosage: UNK
     Route: 065
  7. GLATIRAMER [Suspect]
     Active Substance: GLATIRAMER
     Indication: Product used for unknown indication
     Dosage: UNK
  8. MYCOPHENOLATE MOFETIL [Suspect]
     Active Substance: MYCOPHENOLATE MOFETIL
     Indication: Multiple sclerosis
     Dosage: UNK, (ADDITIONAL INFORMATION ON DRUG (CODED): OFF LABEL USE)
     Route: 065
  9. BIOTIN [Suspect]
     Active Substance: BIOTIN
     Indication: Multiple sclerosis
     Dosage: UNK
     Route: 065
  10. GLATIRAMER ACETATE [Suspect]
     Active Substance: GLATIRAMER ACETATE
     Indication: Multiple sclerosis
     Dosage: UNK
     Route: 065
  11. LEVONORGESTREL [Concomitant]
     Active Substance: LEVONORGESTREL
     Indication: Product used for unknown indication
  12. CYCLOPHOSPHAMIDE [Concomitant]
     Active Substance: CYCLOPHOSPHAMIDE
     Indication: Immunosuppressant drug therapy
  13. GLATIRAMER ACETATE [Concomitant]
     Active Substance: GLATIRAMER ACETATE
     Indication: Immunosuppressant drug therapy
     Dosage: UNK

REACTIONS (6)
  - Relapsing-remitting multiple sclerosis [Unknown]
  - Disease progression [Unknown]
  - Premature menopause [Unknown]
  - Off label use [Unknown]
  - Ovarian failure [Unknown]
  - Off label use [Unknown]
